FAERS Safety Report 23021096 (Version 1)
Quarter: 2023Q4

REPORT INFORMATION
  Report Type: Spontaneous
  Country: GB (occurrence: GB)
  Receive Date: 20231003
  Receipt Date: 20231003
  Transmission Date: 20240109
  Serious: Yes (Disabling)
  Sender: FDA-Public Use
  Company Number: None

PATIENT
  Age: 37 Year
  Sex: Female
  Weight: 114 kg

DRUGS (5)
  1. LIDOCAINE [Suspect]
     Active Substance: LIDOCAINE
     Indication: Vulvovaginal pain
     Dosage: MAY CAUSE SENSITIZATION OF THE SKIN. IF THIS OCCURS, STOP USING IMMEDIATELY
     Route: 065
     Dates: start: 20220121, end: 20220228
  2. LIDOCAINE [Suspect]
     Active Substance: LIDOCAINE
     Indication: Vulvitis
  3. AMITRIPTYLINE [Concomitant]
     Active Substance: AMITRIPTYLINE
     Indication: Vulvovaginal pain
     Dosage: 1 DOSAGE FORMS DAILY; ONE TO BE TAKEN EACH NIGHT FOR VULVODYNIA, STRENGTH:10 MG, 25 MG
     Route: 065
     Dates: start: 20220209
  4. AMITRIPTYLINE [Concomitant]
     Active Substance: AMITRIPTYLINE
     Indication: Pain
     Dosage: 2 DOSAGE FORMS DAILY; 2 AT NIGHT FOR PAIN,STRENGTH:10 MG, 25 MG
     Route: 065
     Dates: start: 20220204, end: 20220209
  5. CLOBETASONE [Concomitant]
     Active Substance: CLOBETASONE
     Indication: Product used for unknown indication
     Dosage: 30 GRAM DAILY; APPLY THINLY EVERY NIGHT FOR 2 WEEKS, THEN REDUCE TO ALTERNATE NIGHTS, IF IMPROVES
     Route: 065
     Dates: start: 20220121

REACTIONS (2)
  - Vulvovaginal burning sensation [Recovering/Resolving]
  - Skin warm [Unknown]

NARRATIVE: CASE EVENT DATE: 20220124
